FAERS Safety Report 21908852 (Version 4)
Quarter: 2023Q4

REPORT INFORMATION
  Report Type: Spontaneous
  Country: US (occurrence: US)
  Receive Date: 20230125
  Receipt Date: 20231204
  Transmission Date: 20240109
  Serious: Yes (Other)
  Sender: FDA-Public Use
  Company Number: US-PFIZER INC-PV202300014722

PATIENT
  Age: 72 Year
  Sex: Male

DRUGS (5)
  1. BRAFTOVI [Suspect]
     Active Substance: ENCORAFENIB
     Indication: Malignant melanoma
     Dosage: 75 MG
  2. BRAFTOVI [Suspect]
     Active Substance: ENCORAFENIB
     Dosage: 450 MG, DAILY (TAKE WHOLE WITH OR WITHOUT FOOD/BRAFTOVI: 6 CAPSULES BY MOUTH ONCE DAILY)
     Route: 048
  3. BRAFTOVI [Suspect]
     Active Substance: ENCORAFENIB
     Dosage: 6 CAPSULE ORALLY EVERY DAY. TAKE WHOLE WITH OR WITHOUT FOOD. TOTAL DAILY DOSE IS 450 MG.
     Route: 048
  4. MEKTOVI [Suspect]
     Active Substance: BINIMETINIB
     Indication: Malignant melanoma
     Dosage: 15 MG
  5. MEKTOVI [Suspect]
     Active Substance: BINIMETINIB
     Dosage: 45 MG, 2X/DAY (3 TABLET ORALLY 2 TIMES PER DAY. TAKE WHOLE WITH OR WITHOUT FOOD)
     Route: 048

REACTIONS (1)
  - Cardiac disorder [Unknown]
